FAERS Safety Report 8029107-7 (Version None)
Quarter: 2012Q1

REPORT INFORMATION
  Report Type: 
  Country: None (occurrence: None)
  Receive Date: 20120106
  Receipt Date: 20111229
  Transmission Date: 20120608
  Serious: Yes (Hospitalization)
  Sender: FDA-Public Use
  Company Number: US-ABBOTT-10P-163-0689716-00

PATIENT
  Sex: Male
  Weight: 107.14 kg

DRUGS (10)
  1. PREDNISONE TAB [Concomitant]
     Indication: CROHN'S DISEASE
     Dates: start: 20050101
  2. METFORMIN HCL [Concomitant]
     Indication: DIABETES MELLITUS
     Dates: start: 20080101
  3. METRONIDAZOLE [Concomitant]
     Indication: CROHN'S DISEASE
     Dates: start: 20080101
  4. SULFASALAZINE [Concomitant]
     Indication: CROHN'S DISEASE
     Dates: start: 20080101
  5. GLYBURIDE [Concomitant]
     Indication: DIABETES MELLITUS
     Dates: start: 20080101
  6. HUMIRA [Suspect]
     Indication: CROHN'S DISEASE
     Route: 058
     Dates: start: 20080208, end: 20091201
  7. VICODIN [Concomitant]
     Indication: CROHN'S DISEASE
     Dosage: 2-4 PILLS A DAY
     Dates: start: 20070101
  8. GLIPIZIDE [Concomitant]
     Indication: DIABETES MELLITUS
     Dates: start: 20080101
  9. FERROUS SULFATE TAB [Concomitant]
     Indication: MINERAL SUPPLEMENTATION
     Dates: start: 20080101
  10. CALCIUM ACETATE [Concomitant]
     Indication: MEDICAL DIET
     Dates: start: 20080101

REACTIONS (1)
  - CARDIOMYOPATHY [None]
